FAERS Safety Report 9099956 (Version 2)
Quarter: 2013Q1

REPORT INFORMATION
  Report Type: Spontaneous
  Country: US (occurrence: US)
  Receive Date: 20130215
  Receipt Date: 20130221
  Transmission Date: 20140127
  Serious: Yes (Other)
  Sender: FDA-Public Use
  Company Number: US-ABBOTT-13P-163-1050865-00

PATIENT
  Age: 41 Year
  Sex: Male

DRUGS (6)
  1. NICOTINIC ACID [Suspect]
     Indication: TYPE II HYPERLIPIDAEMIA
  2. NICOTINIC ACID [Suspect]
     Dates: start: 198908
  3. NICOTINIC ACID [Suspect]
  4. NICOTINIC ACID [Suspect]
  5. LOVASTATIN [Concomitant]
     Indication: TYPE II HYPERLIPIDAEMIA
  6. LOVASTATIN [Concomitant]

REACTIONS (1)
  - Lactic acidosis [Recovered/Resolved]
